FAERS Safety Report 12386212 (Version 6)
Quarter: 2017Q4

REPORT INFORMATION
  Report Type: Report from Study
  Country: CZ (occurrence: CZ)
  Receive Date: 20160519
  Receipt Date: 20171006
  Transmission Date: 20180320
  Serious: Yes (Life-Threatening, Hospitalization)
  Sender: FDA-Public Use
  Company Number: CZ-EISAI MEDICAL RESEARCH-EC-2016-016889

PATIENT
  Age: 45 Year
  Sex: Male
  Weight: 85 kg

DRUGS (12)
  1. LAMICTAL [Concomitant]
     Active Substance: LAMOTRIGINE
  2. FYCOMPA [Suspect]
     Active Substance: PERAMPANEL
     Route: 048
     Dates: start: 20160301, end: 20160418
  3. KEPPRA [Concomitant]
     Active Substance: LEVETIRACETAM
  4. EWOFEX [Concomitant]
  5. DIAZEPAM. [Concomitant]
     Active Substance: DIAZEPAM
  6. CLEXANE [Concomitant]
     Active Substance: ENOXAPARIN SODIUM
  7. RIVOTRIL [Concomitant]
     Active Substance: CLONAZEPAM
  8. FOLIC ACID. [Concomitant]
     Active Substance: FOLIC ACID
  9. MAGNESIUM SULFATE. [Concomitant]
     Active Substance: MAGNESIUM SULFATE
  10. FYCOMPA [Suspect]
     Active Substance: PERAMPANEL
     Indication: PARTIAL SEIZURES
     Route: 048
     Dates: start: 20160125, end: 20160207
  11. CIPRALEX [Concomitant]
     Active Substance: ESCITALOPRAM OXALATE
  12. FYCOMPA [Suspect]
     Active Substance: PERAMPANEL
     Route: 048
     Dates: start: 20160208, end: 20160229

REACTIONS (2)
  - Vertigo [Recovered/Resolved]
  - Seizure [Recovered/Resolved]

NARRATIVE: CASE EVENT DATE: 20160413
